FAERS Safety Report 9263826 (Version 1)
Quarter: 2013Q2

REPORT INFORMATION
  Report Type: Spontaneous
  Country: US (occurrence: US)
  Receive Date: 20130430
  Receipt Date: 20130430
  Transmission Date: 20140414
  Serious: Yes (Other)
  Sender: FDA-Public Use
  Company Number: US-BAYER-2013-052091

PATIENT
  Age: 36 Year
  Sex: Female
  Weight: 104 kg

DRUGS (3)
  1. YASMIN [Suspect]
  2. POLYMYXIN [Concomitant]
     Dosage: 1 DROP, QID
     Route: 047
     Dates: start: 20090602
  3. ADVIL [Concomitant]
     Dosage: 800 MG, UNK
     Route: 048
     Dates: start: 20090705

REACTIONS (1)
  - Deep vein thrombosis [None]
